FAERS Safety Report 16896942 (Version 3)
Quarter: 2019Q4

REPORT INFORMATION
  Report Type: Spontaneous
  Country: US (occurrence: US)
  Receive Date: 20191009
  Receipt Date: 20191108
  Transmission Date: 20200122
  Serious: Yes (Other)
  Sender: FDA-Public Use
  Company Number: US-AMGEN INC.-USASP2019163207

PATIENT
  Age: 58 Year
  Sex: Female

DRUGS (2)
  1. AIMOVIG [Suspect]
     Active Substance: ERENUMAB-AOOE
     Dosage: 140 MILLIGRAM
     Route: 065
     Dates: start: 201908, end: 201909
  2. AIMOVIG [Suspect]
     Active Substance: ERENUMAB-AOOE
     Indication: HEADACHE
     Dosage: 70 MILLIGRAM
     Route: 065
     Dates: start: 201901, end: 201907

REACTIONS (6)
  - Chest pain [Not Recovered/Not Resolved]
  - Palpitations [Unknown]
  - Anxiety [Unknown]
  - Myocardial infarction [Unknown]
  - Nervousness [Unknown]
  - Sleep disorder [Unknown]

NARRATIVE: CASE EVENT DATE: 2019
